FAERS Safety Report 9249068 (Version 1)
Quarter: 2013Q1

REPORT INFORMATION
  Report Type: Spontaneous
  Country: US (occurrence: None)
  Receive Date: 20130305
  Receipt Date: 20130305
  Transmission Date: 20140127
  Serious: Yes (Other)
  Sender: FDA-Public Use
  Company Number: 163-21880-12061275

PATIENT
  Age: 68 Year
  Sex: Male

DRUGS (9)
  1. REVLIMID (LENALIDOMIDE) [Suspect]
     Indication: PLASMA CELL MYELOMA
     Dates: start: 20091029
  2. VITAMIN B12 (CYANOCOBALAMIN) [Concomitant]
  3. VALTREX (VALACICLOVIR HYDROCHLORIDE) [Concomitant]
  4. ASA (ACETYLSALICYLIC ACID) [Concomitant]
  5. MEPRON (ATOVAQUONE) [Concomitant]
  6. LISINOPRIL (LISINOPRIL) [Concomitant]
  7. FINASTERIDE (FINASTERIDE) [Concomitant]
  8. PROXETINE (FLUOXETINE HYDROCHLORIDE) [Concomitant]
  9. ATORVASTATIN (ATORVASTATIN) [Concomitant]

REACTIONS (3)
  - Diarrhoea [None]
  - Hypokalaemia [None]
  - Fatigue [None]
